FAERS Safety Report 7771920-5 (Version None)
Quarter: 2011Q3

REPORT INFORMATION
  Report Type: 
  Country: None (occurrence: None)
  Receive Date: 20110922
  Receipt Date: 20100920
  Transmission Date: 20111222
  Serious: No
  Sender: FDA-Public Use
  Company Number: US-ASTRAZENECA-2008UW27999

PATIENT
  Age: 38 Year
  Sex: Male
  Weight: 81.6 kg

DRUGS (3)
  1. SEROQUEL XR [Suspect]
     Route: 048
  2. METHADONE HCL [Concomitant]
  3. CLONAZEPAM [Concomitant]

REACTIONS (5)
  - HANGOVER [None]
  - INCORRECT DOSE ADMINISTERED [None]
  - DRUG DOSE OMISSION [None]
  - HEADACHE [None]
  - INSOMNIA [None]
